FAERS Safety Report 6577641-9 (Version None)
Quarter: 2010Q1

REPORT INFORMATION
  Report Type: 
  Country: None (occurrence: None)
  Receive Date: 20100211
  Receipt Date: 20100202
  Transmission Date: 20100710
  Serious: Yes (Hospitalization)
  Sender: FDA-Public Use
  Company Number: PHHY2010GB06328

PATIENT

DRUGS (1)
  1. RASILEZ [Suspect]

REACTIONS (4)
  - DYSPHAGIA [None]
  - GASTROSTOMY TUBE INSERTION [None]
  - THROAT CANCER [None]
  - WRONG TECHNIQUE IN DRUG USAGE PROCESS [None]
